FAERS Safety Report 5925304-2 (Version None)
Quarter: 2008Q4

REPORT INFORMATION
  Report Type: 
  Country: None (occurrence: None)
  Receive Date: 20081020
  Receipt Date: 20081020
  Transmission Date: 20090506
  Serious: Yes (Other)
  Sender: FDA-Public Use
  Company Number: None

PATIENT
  Age: 62 Year
  Sex: Male
  Weight: 83.9154 kg

DRUGS (2)
  1. EFFEXOR [Suspect]
     Indication: ANXIETY
     Dosage: 37.5 ONCE DAILY PO
     Route: 048
     Dates: start: 20000101, end: 20081001
  2. EFFEXOR [Suspect]
     Indication: DEPRESSION
     Dosage: 37.5 ONCE DAILY PO
     Route: 048
     Dates: start: 20000101, end: 20081001

REACTIONS (2)
  - 5-HYDROXYINDOLACETIC ACID IN URINE INCREASED [None]
  - SERUM SEROTONIN INCREASED [None]
